FAERS Safety Report 8960146 (Version 1)
Quarter: 2012Q4

REPORT INFORMATION
  Report Type: 
  Country: US (occurrence: US)
  Receive Date: 20121212
  Receipt Date: 20121212
  Transmission Date: 20130627
  Serious: No
  Sender: FDA-Public Use
  Company Number: US-TEVA-375435USA

PATIENT
  Age: 33 Year
  Sex: Female
  Weight: 76.27 kg

DRUGS (3)
  1. PLAN B ONE-STEP [Suspect]
     Indication: POST COITAL CONTRACEPTION
     Dosage: 1.5 Milligram Daily;
     Route: 048
     Dates: start: 20121116, end: 20121116
  2. PLAN B ONE-STEP [Suspect]
     Dosage: 1.5 Milligram Daily;
     Route: 048
     Dates: start: 20121123, end: 20121123
  3. MULTIVITAMINS [Concomitant]
     Indication: SUPPLEMENTATION THERAPY

REACTIONS (3)
  - Muscle spasms [Unknown]
  - Menstruation irregular [Not Recovered/Not Resolved]
  - Off label use [Unknown]
